FAERS Safety Report 20607504 (Version 4)
Quarter: 2022Q2

REPORT INFORMATION
  Report Type: Spontaneous
  Country: CN (occurrence: CN)
  Receive Date: 20220317
  Receipt Date: 20220426
  Transmission Date: 20220721
  Serious: Yes (Other)
  Sender: FDA-Public Use
  Company Number: CN-009507513-2203CHN004533

PATIENT
  Age: 5 Decade
  Sex: Male

DRUGS (2)
  1. KEYTRUDA [Suspect]
     Active Substance: PEMBROLIZUMAB
     Indication: Lung adenocarcinoma
     Dosage: UNK, CYCLICAL
  2. PEMETREXED [Suspect]
     Active Substance: PEMETREXED
     Indication: Lung adenocarcinoma
     Dosage: UNK

REACTIONS (4)
  - Necrotic lymphadenopathy [Recovered/Resolved]
  - Mediastinal mass [Recovered/Resolved]
  - Dyspnoea [Recovered/Resolved]
  - Ill-defined disorder [Unknown]
